FAERS Safety Report 18003850 (Version 1)
Quarter: 2020Q3

REPORT INFORMATION
  Report Type: Spontaneous
  Country: US (occurrence: US)
  Receive Date: 20200709
  Receipt Date: 20200709
  Transmission Date: 20201103
  Serious: No
  Sender: FDA-Public Use
  Company Number: None

PATIENT

DRUGS (2)
  1. NEOSTIGMINE NEOSTIGMINE [Suspect]
     Active Substance: NEOSTIGMINE
  2. NEO?SYNEPHRINE [Suspect]
     Active Substance: PHENYLEPHRINE HYDROCHLORIDE

REACTIONS (2)
  - Product selection error [None]
  - Intercepted product administration error [None]
